FAERS Safety Report 21968926 (Version 1)
Quarter: 2023Q1

REPORT INFORMATION
  Report Type: Spontaneous
  Country: US (occurrence: US)
  Receive Date: 20230208
  Receipt Date: 20230208
  Transmission Date: 20230417
  Serious: Yes (Other)
  Sender: FDA-Public Use
  Company Number: US-MYLANLABS-2023M1013467

PATIENT
  Sex: Male

DRUGS (22)
  1. DEXAMETHASONE [Suspect]
     Active Substance: DEXAMETHASONE
     Indication: Plasma cell myeloma
     Dosage: AS A PART OF VCD REGIMEN
     Route: 065
  2. DEXAMETHASONE [Suspect]
     Active Substance: DEXAMETHASONE
     Dosage: AS A PART OF VRD REGIMEN
     Route: 065
  3. DEXAMETHASONE [Suspect]
     Active Substance: DEXAMETHASONE
     Dosage: AS A PART OF VD REGIMEN
     Route: 065
  4. DEXAMETHASONE [Suspect]
     Active Substance: DEXAMETHASONE
     Dosage: AS A PART OF VDCEP REGIMEN
     Route: 065
  5. LENALIDOMIDE [Suspect]
     Active Substance: LENALIDOMIDE
     Indication: Plasma cell myeloma
     Dosage: AS A PART OF VRD REGIMEN
     Route: 065
  6. MELPHALAN [Suspect]
     Active Substance: MELPHALAN
     Indication: Plasma cell myeloma
     Dosage: UNK
     Route: 065
  7. MELPHALAN [Suspect]
     Active Substance: MELPHALAN
     Dosage: 140 MILLIGRAM/SQ. METER (AS A PART OF CARMUSTINE..)
     Route: 065
  8. CISPLATIN [Suspect]
     Active Substance: CISPLATIN
     Indication: Plasma cell myeloma
     Dosage: AS A PART OF VDCEP REGIMEN
     Route: 065
  9. ETOPOSIDE [Suspect]
     Active Substance: ETOPOSIDE
     Indication: Plasma cell myeloma
     Dosage: AS A PART OF VDCEP REGIMEN
     Route: 065
  10. VELCADE [Suspect]
     Active Substance: BORTEZOMIB
     Indication: Plasma cell myeloma
     Dosage: AS A PART OF VCD REGIMEN
     Route: 065
  11. VELCADE [Suspect]
     Active Substance: BORTEZOMIB
     Dosage: AS A PART OF VRD REGIMEN
     Route: 065
  12. VELCADE [Suspect]
     Active Substance: BORTEZOMIB
     Dosage: AS A PART OF VD REGIMEN
     Route: 065
  13. VELCADE [Suspect]
     Active Substance: BORTEZOMIB
     Dosage: AS A PART OF VDCEP REGIMEN
     Route: 065
  14. CYCLOPHOSPHAMIDE [Suspect]
     Active Substance: CYCLOPHOSPHAMIDE
     Indication: Plasma cell myeloma
     Dosage: AS A PART OF VCD REGIMEN
     Route: 065
  15. CYCLOPHOSPHAMIDE [Suspect]
     Active Substance: CYCLOPHOSPHAMIDE
     Dosage: AS A PART OF VDCEP REGIMEN
     Route: 065
  16. POMALIDOMIDE [Suspect]
     Active Substance: POMALIDOMIDE
     Indication: Plasma cell myeloma
     Dosage: AS A PART OF DARATUMUMAB, CARFILZOMIB AND POMALIDOMIDE THERAPY
     Route: 065
  17. POMALIDOMIDE [Suspect]
     Active Substance: POMALIDOMIDE
     Dosage: AS A PART OF CARFILZOMIB AND POMALIDOMIDE THERAPY
     Route: 065
  18. DARATUMUMAB [Suspect]
     Active Substance: DARATUMUMAB
     Indication: Plasma cell myeloma
     Dosage: UNK
     Route: 065
  19. CARFILZOMIB [Suspect]
     Active Substance: CARFILZOMIB
     Indication: Plasma cell myeloma
     Dosage: AS A PART OF DARATUMUMAB, CARFILZOMIB AND...
     Route: 065
  20. CARFILZOMIB [Suspect]
     Active Substance: CARFILZOMIB
     Dosage: AS A PART OF CARFILZOMIB AND POMALIDOMIDE THERAPY
     Route: 065
  21. IDECABTAGENE VICLEUCEL [Suspect]
     Active Substance: IDECABTAGENE VICLEUCEL
     Indication: Plasma cell myeloma
     Dosage: THE PATIENT RECEIVED IDECABTAGENE-VICLEUCEL INFUSION
     Route: 042
  22. CARMUSTINE [Suspect]
     Active Substance: CARMUSTINE
     Indication: Plasma cell myeloma
     Dosage: 300 MILLIGRAM/SQ. METER (AS A PART OF CARMUSTINE..)
     Route: 065

REACTIONS (2)
  - Drug ineffective [Unknown]
  - Disease progression [Unknown]
